FAERS Safety Report 20013166 (Version 1)
Quarter: 2021Q4

REPORT INFORMATION
  Report Type: Spontaneous
  Country: US (occurrence: US)
  Receive Date: 20211029
  Receipt Date: 20211029
  Transmission Date: 20220303
  Serious: No
  Sender: FDA-Public Use
  Company Number: US-GLAXOSMITHKLINE-USCH2021075375

PATIENT
  Age: 94 Year
  Sex: Female

DRUGS (1)
  1. VOLTAREN ARTHRITIS PAIN [Suspect]
     Active Substance: DICLOFENAC SODIUM
     Indication: Pain
     Dosage: UNK
     Dates: start: 20211012, end: 20211021

REACTIONS (4)
  - Pain [Unknown]
  - Condition aggravated [Unknown]
  - Gait disturbance [Unknown]
  - Product use issue [Unknown]

NARRATIVE: CASE EVENT DATE: 20211026
